FAERS Safety Report 14765614 (Version 1)
Quarter: 2018Q2

REPORT INFORMATION
  Report Type: Spontaneous
  Country: US (occurrence: US)
  Receive Date: 20180410
  Receipt Date: 20180410
  Transmission Date: 20180711
  Serious: Yes (Other)
  Sender: FDA-Public Use
  Company Number: None

PATIENT
  Age: 60 Year
  Sex: Female
  Weight: 68.04 kg

DRUGS (7)
  1. SYNTHROID [Concomitant]
     Active Substance: LEVOTHYROXINE SODIUM
  2. BIOTIN [Concomitant]
     Active Substance: BIOTIN
  3. PROGESTERONE. [Concomitant]
     Active Substance: PROGESTERONE
  4. VITAMIN D [Concomitant]
     Active Substance: CHOLECALCIFEROL
  5. ESTRODIAL [Concomitant]
     Active Substance: ESTRADIOL
  6. DOXYCYCLINE. [Concomitant]
     Active Substance: DOXYCYCLINE
  7. BIMATOPROST OPHTHALMIC SOLUTION, 0.03%, 5ML [Suspect]
     Active Substance: BIMATOPROST
     Indication: MADAROSIS
     Dosage: ?          QUANTITY:5 ML MILLILITRE(S);OTHER ROUTE:EYELASHES?
     Dates: start: 20180224, end: 20180314

REACTIONS (2)
  - Madarosis [None]
  - Product substitution issue [None]
